FAERS Safety Report 7065166-6 (Version None)
Quarter: 2010Q4

REPORT INFORMATION
  Report Type: 
  Country: None (occurrence: None)
  Receive Date: 20101027
  Receipt Date: 20101018
  Transmission Date: 20110411
  Serious: Yes (Death)
  Sender: FDA-Public Use
  Company Number: GXKR2010CN11769

PATIENT
  Age: 68 Year
  Sex: Female

DRUGS (7)
  1. PREDNISOLONE (NGX) [Suspect]
     Indication: IMMUNOSUPPRESSION
     Dosage: UNK
     Route: 065
  2. TACROLIMUS [Suspect]
     Indication: IMMUNOSUPPRESSION
     Dosage: UNK
     Route: 065
  3. RIFAMPICIN [Suspect]
     Indication: TUBERCULOSIS
     Dosage: 450 MG/DAY
  4. ISONIAZID [Suspect]
     Indication: TUBERCULOSIS
     Dosage: 300 MG/DAY
  5. STREPTOMYCIN [Suspect]
     Dosage: 1.0 G/DAY
  6. ETHAMBUTOL (NGX) [Suspect]
     Indication: TUBERCULOSIS
     Dosage: 750 MG/DAY
  7. OFLOXACIN (NGX) [Suspect]
     Indication: TUBERCULOSIS
     Dosage: 300 MG/DAY

REACTIONS (6)
  - DRUG INEFFECTIVE [None]
  - HEPATIC FAILURE [None]
  - LUNG INFECTION [None]
  - MYCOBACTERIUM TUBERCULOSIS COMPLEX TEST POSITIVE [None]
  - RESPIRATORY FAILURE [None]
  - TUBERCULOSIS OF CENTRAL NERVOUS SYSTEM [None]
